FAERS Safety Report 8791333 (Version 1)
Quarter: 2012Q4

REPORT INFORMATION
  Report Type: Spontaneous
  Country: US (occurrence: None)
  Receive Date: 20120911
  Receipt Date: 20120911
  Transmission Date: 20130627
  Serious: Yes (Hospitalization)
  Sender: FDA-Public Use
  Company Number: DKLU1084262

PATIENT
  Age: 16 Year
  Sex: Female

DRUGS (4)
  1. SABRIL (TABLET) (SABRIL) (VIGABATRIN) (500 MG, TABLET) [Suspect]
     Route: 048
     Dates: start: 20120815
  2. SABRIL (TABLET) (SABRIL) (VIGABATRIN) (500 MG, TABLET) [Suspect]
  3. DEPAKOTE [Suspect]
  4. TOPAMAX (TOPIRAMATE) [Concomitant]

REACTIONS (3)
  - Crying [None]
  - Dizziness [None]
  - Irritability [None]
